FAERS Safety Report 7225974-5 (Version None)
Quarter: 2011Q1

REPORT INFORMATION
  Report Type: 
  Country: None (occurrence: None)
  Receive Date: 20110113
  Receipt Date: 20110106
  Transmission Date: 20110831
  Serious: Yes (Other)
  Sender: FDA-Public Use
  Company Number: HU-PFIZER INC-2011004349

PATIENT
  Age: 66 Year
  Sex: Female
  Weight: 105 kg

DRUGS (18)
  1. LYRICA [Suspect]
     Indication: NEURALGIA
     Dosage: 75 MG, 2X/DAY
     Route: 048
     Dates: start: 20100101, end: 20100101
  2. LANTUS [Concomitant]
     Dosage: UNK
     Dates: start: 20050101
  3. NOVORAPID [Concomitant]
     Dosage: UNK
     Dates: start: 20050101
  4. INDAPAMIDE [Concomitant]
     Dosage: UNK
     Dates: start: 20100101
  5. OLICARD [Concomitant]
     Dosage: UNK
     Route: 048
     Dates: start: 20000101
  6. CYMBALTA [Concomitant]
     Dosage: UNK
     Dates: start: 20000101
  7. MIRTAZAPINE [Concomitant]
     Dosage: UNK
     Route: 048
     Dates: start: 20000101
  8. MOTILIUM [Concomitant]
     Dosage: UNK
     Route: 048
  9. QUAMATEL [Concomitant]
     Dosage: UNK
     Route: 048
  10. TENOX [Concomitant]
     Route: 048
     Dates: start: 20100101
  11. RIVOTRIL [Concomitant]
     Dosage: UNK
  12. METOPROLOL [Concomitant]
     Dosage: UNK
  13. NIMESULIDE [Concomitant]
     Dosage: UNK
     Dates: start: 20100101, end: 20100101
  14. CHINOTAL [Concomitant]
     Dosage: UNK
     Route: 048
     Dates: start: 20000101
  15. PERINDOPRIL [Concomitant]
     Dosage: UNK
  16. THIOGAMMA [Concomitant]
     Dosage: TABLET
     Route: 048
     Dates: start: 20050101
  17. DOXIUM [Concomitant]
     Dosage: UNK
     Route: 048
     Dates: start: 20050101
  18. TEGRETOL [Concomitant]
     Dosage: UNK
     Dates: start: 20000101

REACTIONS (3)
  - ILLUSION [None]
  - BLOOD GLUCOSE INCREASED [None]
  - CONFUSIONAL STATE [None]
